FAERS Safety Report 6266256-8 (Version None)
Quarter: 2009Q3

REPORT INFORMATION
  Report Type: 
  Country: None (occurrence: None)
  Receive Date: 20090713
  Receipt Date: 20090706
  Transmission Date: 20100115
  Serious: Yes (Other)
  Sender: FDA-Public Use
  Company Number: US-AVENTIS-200915871US

PATIENT
  Age: 66 Year
  Sex: Male

DRUGS (1)
  1. NASACORT AQ [Suspect]
     Indication: SINUSITIS
     Dosage: DOSE: 2 SPRAYS
     Dates: start: 20090622

REACTIONS (8)
  - COLD SWEAT [None]
  - DIZZINESS [None]
  - EAR PAIN [None]
  - MENIERE'S DISEASE [None]
  - PNEUMONIA [None]
  - SINUSITIS [None]
  - VERTIGO [None]
  - VOMITING [None]
